FAERS Safety Report 8339823-5 (Version None)
Quarter: 2012Q2

REPORT INFORMATION
  Report Type: 
  Country: None (occurrence: None)
  Receive Date: 20120507
  Receipt Date: 20120426
  Transmission Date: 20120825
  Serious: Yes (Other)
  Sender: FDA-Public Use
  Company Number: JP-CUBIST-2012S1000409

PATIENT
  Sex: Male

DRUGS (1)
  1. CUBICIN [Suspect]
     Indication: SEPSIS
     Route: 042
     Dates: start: 20120420, end: 20120420

REACTIONS (1)
  - VENTRICULAR ARRHYTHMIA [None]
